FAERS Safety Report 13296616 (Version 1)
Quarter: 2017Q1

REPORT INFORMATION
  Report Type: Report from Study
  Country: ES (occurrence: ES)
  Receive Date: 20170306
  Receipt Date: 20170306
  Transmission Date: 20170428
  Serious: Yes (Death, Other)
  Sender: FDA-Public Use
  Company Number: ES-ROCHE-1538250

PATIENT
  Sex: Male
  Weight: 73 kg

DRUGS (2)
  1. OBINUTUZUMAB [Suspect]
     Active Substance: OBINUTUZUMAB
     Indication: DIFFUSE LARGE B-CELL LYMPHOMA
  2. OBINUTUZUMAB [Suspect]
     Active Substance: OBINUTUZUMAB
     Indication: NON-HODGKIN^S LYMPHOMA
     Route: 042

REACTIONS (7)
  - Treatment failure [Unknown]
  - Multiple organ dysfunction syndrome [Fatal]
  - Autonomic nervous system imbalance [Recovered/Resolved]
  - Polyneuropathy [Recovered/Resolved]
  - Diabetes mellitus [Recovered/Resolved]
  - Atrial flutter [Recovered/Resolved]
  - Atrial fibrillation [Recovered/Resolved]
